FAERS Safety Report 10018192 (Version 1)
Quarter: 2014Q1

REPORT INFORMATION
  Report Type: Spontaneous
  Country: US (occurrence: US)
  Receive Date: 20140318
  Receipt Date: 20140318
  Transmission Date: 20141002
  Serious: Yes (Death)
  Sender: FDA-Public Use
  Company Number: US-BRISTOL-MYERS SQUIBB COMPANY-19193804

PATIENT
  Age: 59 Year
  Sex: Male
  Weight: 68.03 kg

DRUGS (1)
  1. ERBITUX [Suspect]
     Indication: HEAD AND NECK CANCER METASTATIC
     Dosage: INFS ON 17MAY, 24MAY, AND 31MAY OF THIS YEAR?NO OF INF 3
     Dates: start: 20130517

REACTIONS (1)
  - Malignant neoplasm progression [Fatal]
